FAERS Safety Report 25617013 (Version 1)
Quarter: 2025Q3

REPORT INFORMATION
  Report Type: Spontaneous
  Country: CA (occurrence: CA)
  Receive Date: 20250729
  Receipt Date: 20250729
  Transmission Date: 20251020
  Serious: Yes (Death)
  Sender: SAMSUNG BIOEPIS
  Company Number: CA-SAMSUNG BIOEPIS-SB-2025-25871

PATIENT
  Sex: Female

DRUGS (1)
  1. BYOOVIZ [Suspect]
     Active Substance: RANIBIZUMAB-NUNA
     Indication: Product used for unknown indication

REACTIONS (1)
  - Death [Fatal]
